FAERS Safety Report 7861936-2 (Version None)
Quarter: 2011Q4

REPORT INFORMATION
  Report Type: 
  Country: None (occurrence: None)
  Receive Date: 20111027
  Receipt Date: 20111020
  Transmission Date: 20120403
  Serious: Yes (Hospitalization)
  Sender: FDA-Public Use
  Company Number: CN-GILEAD-2011-0045706

PATIENT
  Age: 35 Year
  Sex: Male

DRUGS (1)
  1. ADEFOVIR DIPIVOXIL KIT [Suspect]
     Indication: HEPATITIS B
     Dosage: UNK

REACTIONS (4)
  - OSTEOMALACIA [None]
  - BLOOD PHOSPHORUS DECREASED [None]
  - RENAL TUBULAR DISORDER [None]
  - BLOOD CREATININE INCREASED [None]
